FAERS Safety Report 6113088-7 (Version None)
Quarter: 2009Q1

REPORT INFORMATION
  Report Type: 
  Country: None (occurrence: None)
  Receive Date: 20090312
  Receipt Date: 20090303
  Transmission Date: 20090719
  Serious: Yes (Hospitalization)
  Sender: FDA-Public Use
  Company Number: PH-BRISTOL-MYERS SQUIBB COMPANY-14526917

PATIENT
  Age: 42 Year
  Sex: Male

DRUGS (3)
  1. DAPAGLIFLOZIN [Suspect]
     Indication: TYPE 2 DIABETES MELLITUS
     Dosage: INTERRUPTED ON 25FEB09
     Route: 048
     Dates: start: 20081223
  2. METFORMIN HCL [Suspect]
     Indication: TYPE 2 DIABETES MELLITUS
     Dosage: TAKEN AS METFORMIN XR. INTERRUPTED ON 25FEB09
     Route: 048
     Dates: start: 20081223
  3. PLACEBO [Suspect]
     Indication: TYPE 2 DIABETES MELLITUS
     Dosage: INTERRUPTED ON 25FEB09
     Route: 048
     Dates: start: 20081223

REACTIONS (1)
  - PNEUMONIA [None]
